FAERS Safety Report 16051410 (Version 2)
Quarter: 2025Q3

REPORT INFORMATION
  Report Type: Spontaneous
  Country: EU (occurrence: EU)
  Receive Date: 20190308
  Receipt Date: 20250817
  Transmission Date: 20251020
  Serious: Yes (Hospitalization, Other)
  Sender: AUROBINDO
  Company Number: EU-AUROBINDO-AUR-APL-2019-012077

PATIENT
  Age: 69 Year
  Sex: Male

DRUGS (11)
  1. RIBAVIRIN [Suspect]
     Active Substance: RIBAVIRIN
     Indication: Hepatitis C virus test positive
     Route: 065
     Dates: start: 201507, end: 201510
  2. RIBAVIRIN [Suspect]
     Active Substance: RIBAVIRIN
     Route: 065
     Dates: start: 201504, end: 201507
  3. DASABUVIR [Suspect]
     Active Substance: DASABUVIR
     Indication: Hepatitis C virus test positive
     Route: 065
     Dates: start: 201504, end: 201510
  4. OMBITASVIR [Suspect]
     Active Substance: OMBITASVIR
     Indication: Hepatitis C virus test positive
     Route: 065
     Dates: start: 201504, end: 201510
  5. PARITAPREVIR [Suspect]
     Active Substance: PARITAPREVIR
     Indication: Hepatitis C virus test positive
     Route: 065
     Dates: start: 201504, end: 201510
  6. RITONAVIR [Suspect]
     Active Substance: RITONAVIR
     Indication: Hepatitis C virus test positive
     Route: 065
     Dates: start: 201504, end: 201510
  7. ASPIRIN [Concomitant]
     Active Substance: ASPIRIN
     Indication: Atrial fibrillation
     Route: 065
  8. FLECAINIDE [Concomitant]
     Active Substance: FLECAINIDE
     Indication: Atrial fibrillation
     Route: 065
  9. HYDROCHLOROTHIAZIDE [Concomitant]
     Active Substance: HYDROCHLOROTHIAZIDE
     Indication: Atrial fibrillation
     Route: 065
  10. VALSARTAN [Concomitant]
     Active Substance: VALSARTAN
     Indication: Atrial fibrillation
     Route: 065
     Dates: start: 201507
  11. VALSARTAN [Concomitant]
     Active Substance: VALSARTAN
     Dates: end: 201507

REACTIONS (4)
  - Cardiotoxicity [Unknown]
  - Syncope [Unknown]
  - Arrhythmia [Unknown]
  - Bradycardia [Unknown]

NARRATIVE: CASE EVENT DATE: 20150101
